FAERS Safety Report 14169379 (Version 1)
Quarter: 2017Q4

REPORT INFORMATION
  Report Type: Spontaneous
  Country: US (occurrence: US)
  Receive Date: 20171107
  Receipt Date: 20171107
  Transmission Date: 20180321
  Serious: Yes (Other)
  Sender: FDA-Public Use
  Company Number: None

PATIENT
  Age: 35 Year
  Sex: Female
  Weight: 60.75 kg

DRUGS (1)
  1. TUBERSOL [Suspect]
     Active Substance: TUBERCULIN PURIFIED PROTEIN DERIVATIVE
     Indication: PHYSICAL EXAMINATION

REACTIONS (7)
  - Pyrexia [None]
  - Injection site induration [None]
  - Injection site pruritus [None]
  - Injection site vesicles [None]
  - Injection site rash [None]
  - Injection site pain [None]
  - Lymph node pain [None]

NARRATIVE: CASE EVENT DATE: 20171026
